FAERS Safety Report 25989445 (Version 2)
Quarter: 2025Q4

REPORT INFORMATION
  Report Type: Spontaneous
  Country: US (occurrence: US)
  Receive Date: 20251103
  Receipt Date: 20251118
  Transmission Date: 20260118
  Serious: No
  Sender: LUPIN
  Company Number: US-LUPIN PHARMACEUTICALS INC.-2025-09823

PATIENT
  Age: 28 Year

DRUGS (4)
  1. TOLVAPTAN [Suspect]
     Active Substance: TOLVAPTAN
     Indication: Congenital cystic kidney disease
     Dosage: 90MG TABLET BY MOUTH UPON WAKING
  2. TOLVAPTAN [Suspect]
     Active Substance: TOLVAPTAN
     Indication: Congenital cystic kidney disease
     Dosage: 30 MILLIGRAM, QD, ONE 90MG TABLET BY MOUTH UPON WAKING AND TAKE ONE 30MG BY MOUTH 8 HOURS LATER
  3. LISINOPRIL [Concomitant]
     Active Substance: LISINOPRIL
     Indication: Product used for unknown indication
     Dosage: , LISINOPRIL TAB 30MG; LISINOPRIL TAB 40MG
     Route: 065
  4. JYNARQUE [Concomitant]
     Active Substance: TOLVAPTAN
     Indication: Product used for unknown indication
     Dosage: UNK, JYNARQUE 90 MG-30 MG TAB PAK
     Route: 065

REACTIONS (2)
  - Pollakiuria [Recovered/Resolved]
  - Product dose omission issue [Unknown]
